FAERS Safety Report 5353011-6 (Version None)
Quarter: 2007Q2

REPORT INFORMATION
  Report Type: 
  Country: None (occurrence: None)
  Receive Date: 20070611
  Receipt Date: 20070531
  Transmission Date: 20071010
  Serious: Yes (Hospitalization, Other)
  Sender: FDA-Public Use
  Company Number: AT-PFIZER INC-2007034266

PATIENT
  Sex: Female
  Weight: 70 kg

DRUGS (3)
  1. RELPAX [Suspect]
     Indication: MIGRAINE
     Route: 048
  2. PASPERTIN [Concomitant]
     Route: 048
  3. PANTOPRAZOLE SODIUM [Concomitant]
     Route: 048

REACTIONS (4)
  - DRUG DEPENDENCE [None]
  - INTENTIONAL DRUG MISUSE [None]
  - MICTURITION DISORDER [None]
  - MIGRAINE [None]
